FAERS Safety Report 13698261 (Version 14)
Quarter: 2018Q2

REPORT INFORMATION
  Report Type: Spontaneous
  Country: CA (occurrence: CA)
  Receive Date: 20170628
  Receipt Date: 20180511
  Transmission Date: 20180711
  Serious: Yes (Other)
  Sender: FDA-Public Use
  Company Number: CA-CELLTRION INC.-2017CA007961

PATIENT

DRUGS (19)
  1. INFLECTRA [Suspect]
     Active Substance: INFLIXIMAB-DYYB
     Dosage: 615 MG EVERY 6 WEEKS
     Route: 042
     Dates: start: 20180404
  2. CIPROFLOXACIN. [Concomitant]
     Active Substance: CIPROFLOXACIN
     Dosage: UNK
     Route: 048
  3. INFLECTRA [Suspect]
     Active Substance: INFLIXIMAB-DYYB
     Dosage: 615 MG,  EVERY 6 WEEKS
     Route: 042
     Dates: start: 20180110
  4. INFLECTRA [Suspect]
     Active Substance: INFLIXIMAB-DYYB
     Dosage: 615 MG,  EVERY 8 WEEKS
     Route: 042
     Dates: end: 20171018
  5. CALCIUM [Concomitant]
     Active Substance: CALCIUM
     Indication: SUPPLEMENTATION THERAPY
     Dosage: UNK UNK, BID
     Route: 048
  6. VANCOMYCIN [Concomitant]
     Active Substance: VANCOMYCIN
     Dosage: 125 MG, 2X/DAY FOR 8 WEEKS
     Route: 048
  7. INFLECTRA [Suspect]
     Active Substance: INFLIXIMAB-DYYB
     Dosage: 615 MG, CYCLIC (0, 2, 6 WEEKS THEN EVERY 6 WEEKS)
     Route: 042
     Dates: start: 20171129
  8. INFLECTRA [Suspect]
     Active Substance: INFLIXIMAB-DYYB
     Dosage: 615 MG,  EVERY 6 WEEKS
     Route: 042
     Dates: start: 20180221
  9. VANCOMYCIN [Concomitant]
     Active Substance: VANCOMYCIN
     Dosage: 500 MG, 1X/DAY
     Route: 048
     Dates: start: 2017
  10. VANCOMYCIN [Concomitant]
     Active Substance: VANCOMYCIN
     Dosage: 500 MG, 2X/DAY
     Route: 048
  11. PREDNISONE. [Concomitant]
     Active Substance: PREDNISONE
     Dosage: 40 MG, 1X/DAY
     Route: 048
  12. INFLECTRA [Suspect]
     Active Substance: INFLIXIMAB-DYYB
     Dosage: 600 MG, CYCLIC
     Route: 042
     Dates: start: 20170621, end: 2017
  13. PENTASA [Concomitant]
     Active Substance: MESALAMINE
     Dosage: 2 DF(TABLETS), BID
     Route: 048
     Dates: start: 201512
  14. DALTEPARIN [Concomitant]
     Active Substance: DALTEPARIN
     Dosage: UNK UNK, DAILY
     Route: 058
  15. FLAGYL [Concomitant]
     Active Substance: METRONIDAZOLE\METRONIDAZOLE HYDROCHLORIDE
     Dosage: UNK
     Route: 048
  16. VITAMIN D                          /00107901/ [Concomitant]
     Active Substance: ERGOCALCIFEROL
     Indication: SUPPLEMENTATION THERAPY
     Dosage: UNK
     Route: 065
  17. PREDNISONE. [Concomitant]
     Active Substance: PREDNISONE
     Dosage: UNK, AS NEEDED
     Route: 048
     Dates: start: 201512
  18. INFLECTRA [Suspect]
     Active Substance: INFLIXIMAB-DYYB
     Indication: COLITIS ULCERATIVE
     Dosage: 318 MG, AT 0,2,6WEEKS THEN EVERY 8 WEEKS
     Route: 042
     Dates: start: 20170613, end: 201706
  19. INFLECTRA [Suspect]
     Active Substance: INFLIXIMAB-DYYB
     Dosage: 615 MG,  EVERY 6 WEEKS
     Route: 042

REACTIONS (10)
  - Drug level above therapeutic [Unknown]
  - Product use issue [Unknown]
  - Clostridium difficile colitis [Recovering/Resolving]
  - Condition aggravated [Not Recovered/Not Resolved]
  - Influenza [Recovered/Resolved]
  - Faecal calprotectin increased [Unknown]
  - Frequent bowel movements [Not Recovered/Not Resolved]
  - Diarrhoea [Not Recovered/Not Resolved]
  - Weight increased [Unknown]
  - Drug effect decreased [Unknown]

NARRATIVE: CASE EVENT DATE: 2017
